FAERS Safety Report 8042707-3 (Version None)
Quarter: 2012Q1

REPORT INFORMATION
  Report Type: 
  Country: None (occurrence: None)
  Receive Date: 20120112
  Receipt Date: 20120103
  Transmission Date: 20120608
  Serious: Yes (Other)
  Sender: FDA-Public Use
  Company Number: US-ACTELION-A-US2012-59191

PATIENT

DRUGS (3)
  1. EPOPROSTENOL SODIUM [Suspect]
     Indication: PULMONARY ARTERIAL HYPERTENSION
     Dosage: 57 NG/KG, PER MIN
     Route: 042
     Dates: start: 20111206
  2. OXYGEN [Concomitant]
  3. COUMADIN [Concomitant]

REACTIONS (6)
  - DYSGEUSIA [None]
  - CATHETER SITE ERYTHEMA [None]
  - FUNGAL INFECTION [None]
  - DECREASED APPETITE [None]
  - CATHETER SITE PRURITUS [None]
  - NAUSEA [None]
